FAERS Safety Report 8288042-X (Version None)
Quarter: 2012Q2

REPORT INFORMATION
  Report Type: 
  Country: None (occurrence: None)
  Receive Date: 20120416
  Receipt Date: 20120410
  Transmission Date: 20120825
  Serious: Yes (Life-Threatening, Hospitalization)
  Sender: FDA-Public Use
  Company Number: DE-GLAXOSMITHKLINE-D0059068A

PATIENT
  Sex: Male
  Weight: 9 kg

DRUGS (1)
  1. AVANDIA [Suspect]
     Indication: TYPE 2 DIABETES MELLITUS
     Dosage: 4MG PER DAY
     Route: 048
     Dates: start: 20060101, end: 20080626

REACTIONS (10)
  - HYPOGLYCAEMIA [None]
  - CONVULSION [None]
  - LOSS OF CONSCIOUSNESS [None]
  - DIZZINESS [None]
  - ASTHENIA [None]
  - ENURESIS [None]
  - MALAISE [None]
  - HYPERHIDROSIS [None]
  - TREMOR [None]
  - FALL [None]
